FAERS Safety Report 6045585-7 (Version None)
Quarter: 2009Q1

REPORT INFORMATION
  Report Type: 
  Country: None (occurrence: None)
  Receive Date: 20090121
  Receipt Date: 20090116
  Transmission Date: 20090719
  Serious: Yes (Death, Hospitalization)
  Sender: FDA-Public Use
  Company Number: US-GILEAD-2009-0019767

PATIENT
  Sex: Female
  Weight: 73.094 kg

DRUGS (12)
  1. LETAIRIS [Suspect]
     Indication: PULMONARY ARTERIAL HYPERTENSION
     Route: 048
     Dates: start: 20080429
  2. VENTAVIS [Concomitant]
     Route: 055
  3. REVATIO [Concomitant]
     Route: 048
  4. COUMADIN [Concomitant]
     Route: 048
  5. LASIX [Concomitant]
     Route: 048
  6. ZAROXOLYN [Concomitant]
     Route: 048
  7. OXYGEN [Concomitant]
  8. AMIODARONE HCL [Concomitant]
     Route: 048
  9. DIGOXIN [Concomitant]
     Route: 048
  10. SYNTHROID [Concomitant]
     Route: 048
  11. GLYBURIDE [Concomitant]
     Route: 048
  12. TYLENOL (CAPLET) [Concomitant]
     Indication: PULMONARY ARTERIAL HYPERTENSION
     Route: 048

REACTIONS (1)
  - DEATH [None]
